FAERS Safety Report 9927918 (Version 1)
Quarter: 2014Q1

REPORT INFORMATION
  Report Type: Spontaneous
  Country: US (occurrence: US)
  Receive Date: 20140227
  Receipt Date: 20140227
  Transmission Date: 20141002
  Serious: No
  Sender: FDA-Public Use
  Company Number: US-PFIZER INC-2014053101

PATIENT
  Age: 71 Year
  Sex: Female

DRUGS (3)
  1. DILANTIN [Suspect]
     Dosage: UNK
  2. DILANTIN [Suspect]
     Dosage: UNK (INCREASED DOSE)
  3. KEPPRA [Suspect]
     Dosage: UNK

REACTIONS (1)
  - Rash [Unknown]
